FAERS Safety Report 23888818 (Version 2)
Quarter: 2024Q2

REPORT INFORMATION
  Report Type: Spontaneous
  Country: GB (occurrence: GB)
  Receive Date: 20240523
  Receipt Date: 20240613
  Transmission Date: 20240716
  Serious: No
  Sender: FDA-Public Use
  Company Number: GB-PFIZER INC-PV202400066327

PATIENT
  Age: 64 Year
  Sex: Female

DRUGS (1)
  1. GENOTROPIN [Suspect]
     Active Substance: SOMATROPIN
     Dosage: 5.3 MG, 1X/DAY
     Route: 058

REACTIONS (2)
  - Drug dose omission by device [Unknown]
  - Device loosening [Unknown]
